FAERS Safety Report 5989991-5 (Version None)
Quarter: 2008Q4

REPORT INFORMATION
  Report Type: 
  Country: None (occurrence: None)
  Receive Date: 20081211
  Receipt Date: 20081209
  Transmission Date: 20090506
  Serious: Yes (Other)
  Sender: FDA-Public Use
  Company Number: US-SP-2008-03944

PATIENT
  Age: 58 Year
  Sex: Male

DRUGS (1)
  1. TUBERSOL [Suspect]
     Indication: TUBERCULIN TEST
     Route: 065

REACTIONS (2)
  - DRUG PRESCRIBING ERROR [None]
  - INJECTION SITE NECROSIS [None]
